FAERS Safety Report 16939280 (Version 1)
Quarter: 2019Q4

REPORT INFORMATION
  Report Type: Report from Study
  Country: CA (occurrence: CA)
  Receive Date: 20191021
  Receipt Date: 20191021
  Transmission Date: 20200122
  Serious: Yes (Other)
  Sender: FDA-Public Use
  Company Number: CA-HLSUS-2017-CA-001269

PATIENT
  Sex: Female

DRUGS (10)
  1. SYNTHROID [Concomitant]
     Active Substance: LEVOTHYROXINE SODIUM
     Dates: start: 20181031
  2. ASA [Concomitant]
     Active Substance: ASPIRIN
  3. VITAMIN D 1000 U [Concomitant]
     Dates: start: 20181031
  4. PANTOLOC [Concomitant]
     Active Substance: PANTOPRAZOLE SODIUM
     Dates: start: 20181031
  5. FERROUS SULFATE. [Concomitant]
     Active Substance: FERROUS SULFATE
  6. METOPROLOL. [Concomitant]
     Active Substance: METOPROLOL
     Dates: start: 20181031
  7. CLOZARIL [Suspect]
     Active Substance: CLOZAPINE
     Dates: start: 20180215
  8. VITAMINE B12 [Concomitant]
     Active Substance: CYANOCOBALAMIN
     Dates: start: 20181213
  9. FUROSEMIDE. [Concomitant]
     Active Substance: FUROSEMIDE
     Dates: start: 20190812
  10. FLUOXETINE [Concomitant]
     Active Substance: FLUOXETINE HYDROCHLORIDE
     Dates: start: 20181031

REACTIONS (5)
  - Hypothyroidism [Unknown]
  - Epilepsy [Unknown]
  - Gastrooesophageal reflux disease [Unknown]
  - Electrocardiogram QT prolonged [Unknown]
  - Osteoarthritis [Unknown]
